FAERS Safety Report 5566800-X (Version None)
Quarter: 2007Q4

REPORT INFORMATION
  Report Type: 
  Country: None (occurrence: None)
  Receive Date: 20071219
  Receipt Date: 20071211
  Transmission Date: 20080405
  Serious: Yes (Hospitalization)
  Sender: FDA-Public Use
  Company Number: B0478243A

PATIENT
  Age: 56 Year
  Sex: Female
  Weight: 46.1 kg

DRUGS (8)
  1. LAPATINIB [Suspect]
     Dosage: 1250MG PER DAY
     Route: 048
     Dates: start: 20070504, end: 20070622
  2. CAPECITABINE [Suspect]
     Dosage: 3000MG PER DAY
     Route: 048
     Dates: start: 20070504, end: 20070622
  3. ZIMOVANE [Concomitant]
     Dosage: 7.5MG PER DAY
     Route: 048
     Dates: start: 20070401
  4. LOSEC [Concomitant]
     Dosage: 20MG PER DAY
     Route: 048
     Dates: start: 20070401
  5. MAXOLON [Concomitant]
     Indication: NAUSEA
     Dosage: 20MG THREE TIMES PER DAY
     Route: 048
     Dates: start: 20070625, end: 20070711
  6. DEXAMETHASONE TAB [Concomitant]
     Indication: DIZZINESS
     Route: 048
     Dates: start: 20070626, end: 20070712
  7. RITALIN [Concomitant]
     Indication: ENERGY INCREASED
     Dosage: 5MG TWICE PER DAY
     Route: 048
     Dates: start: 20070704, end: 20070709
  8. INNOHEP [Concomitant]
     Indication: PULMONARY EMBOLISM
     Route: 058
     Dates: start: 20070704, end: 20070711

REACTIONS (7)
  - ASTHENIA [None]
  - DIZZINESS [None]
  - FATIGUE [None]
  - HEADACHE [None]
  - METASTASES TO CENTRAL NERVOUS SYSTEM [None]
  - NAUSEA [None]
  - PULMONARY EMBOLISM [None]
